FAERS Safety Report 9563740 (Version 1)
Quarter: 2013Q3

REPORT INFORMATION
  Report Type: Spontaneous
  Country: UG (occurrence: None)
  Receive Date: 20130926
  Receipt Date: 20130926
  Transmission Date: 20140515
  Serious: Yes (Death, Hospitalization, Other)
  Sender: FDA-Public Use
  Company Number: VAL_02742_2013

PATIENT
  Sex: 0

DRUGS (5)
  1. METOPROLOL [Suspect]
     Indication: MATERNAL EXPOSURE TIMING UNSPECIFIED
  2. HYDRALAZINE [Suspect]
     Indication: MATERNAL EXPOSURE TIMING UNSPECIFIED
  3. MAGNESIUM SULPHATE / 07507001/ UNKNOWN [Concomitant]
  4. PRAZOCIN (UNKNOWN UNTIL NOT CONTINUING) [Concomitant]
  5. NIFEDIPINE (UNKNOWN UNTIL NOT CONTINUING) [Concomitant]

REACTIONS (3)
  - Premature baby [None]
  - Death neonatal [None]
  - Maternal drugs affecting foetus [None]
